FAERS Safety Report 14192032 (Version 1)
Quarter: 2017Q4

REPORT INFORMATION
  Report Type: Spontaneous
  Country: HR (occurrence: HR)
  Receive Date: 20171115
  Receipt Date: 20171115
  Transmission Date: 20180321
  Serious: Yes (Other)
  Sender: FDA-Public Use
  Company Number: HR-AMGEN-HRVSP2017170691

PATIENT

DRUGS (7)
  1. PLATINOL [Concomitant]
     Active Substance: CISPLATIN
     Dosage: UNK UNK, CYCLICAL (DOSE REDUCED)
  2. PEGFILGRASTIM [Suspect]
     Active Substance: PEGFILGRASTIM
     Indication: PROPHYLAXIS
     Dosage: UNK
     Route: 065
  3. PLATINOL [Concomitant]
     Active Substance: CISPLATIN
     Indication: MANTLE CELL LYMPHOMA
     Dosage: UNK UNK, CYCLICAL
  4. DEXAMETHASONE. [Concomitant]
     Active Substance: DEXAMETHASONE
     Dosage: UNK UNK, CYCLICAL (DOSE REDUCED)
  5. ARA-C [Concomitant]
     Active Substance: CYTARABINE
     Indication: MANTLE CELL LYMPHOMA
     Dosage: UNK UNK, CYCLICAL
  6. ARA-C [Concomitant]
     Active Substance: CYTARABINE
     Dosage: UNK UNK, CYCLICAL (DOSE REDUCED)
  7. DEXAMETHASONE. [Concomitant]
     Active Substance: DEXAMETHASONE
     Indication: MANTLE CELL LYMPHOMA
     Dosage: UNK UNK, CYCLICAL

REACTIONS (1)
  - Febrile neutropenia [Unknown]
